FAERS Safety Report 17074405 (Version 1)
Quarter: 2019Q4

REPORT INFORMATION
  Report Type: Spontaneous
  Country: BR (occurrence: BR)
  Receive Date: 20191126
  Receipt Date: 20191126
  Transmission Date: 20200122
  Serious: No
  Sender: FDA-Public Use
  Company Number: BR-BEH-2019109832

PATIENT
  Age: 5 Year

DRUGS (1)
  1. HIZENTRA [Suspect]
     Active Substance: HUMAN IMMUNOGLOBULIN G
     Dosage: 6 GRAM (6 BOTTLES OF 1 G EACH), QOW (EVERY 15 DAYS)
     Route: 058

REACTIONS (3)
  - Abdominal pain [Unknown]
  - Pallor [Unknown]
  - Hypotension [Unknown]
